FAERS Safety Report 8598904-1 (Version None)
Quarter: 2012Q3

REPORT INFORMATION
  Report Type: 
  Country: None (occurrence: None)
  Receive Date: 20120816
  Receipt Date: 20101209
  Transmission Date: 20120928
  Serious: No
  Sender: FDA-Public Use
  Company Number: US-BAYER-2010-001556

PATIENT
  Age: 53 Year
  Sex: Female
  Weight: 95.238 kg

DRUGS (8)
  1. ALEVE (CAPLET) [Suspect]
     Indication: BURSITIS
     Dosage: 2 DF, A DAY
     Route: 048
  2. CARTROL [Concomitant]
  3. ALEVE (CAPLET) [Suspect]
     Indication: ANALGESIC THERAPY
     Dosage: 440 MG , QD
     Route: 048
  4. INSULIN [Concomitant]
  5. GLUCOPHAGE [Concomitant]
  6. LANTUS [Concomitant]
  7. ATENOLOL [Concomitant]
  8. ANALGESICS [Concomitant]

REACTIONS (2)
  - PAIN [None]
  - BURSITIS [None]
